FAERS Safety Report 8262684-X (Version None)
Quarter: 2012Q1

REPORT INFORMATION
  Report Type: 
  Country: None (occurrence: None)
  Receive Date: 20120327
  Receipt Date: 20110405
  Transmission Date: 20120608
  Serious: Yes (Life-Threatening, Other)
  Sender: FDA-Public Use
  Company Number: PHHY2011US26587

PATIENT
  Age: 63 Year
  Sex: Female

DRUGS (1)
  1. GLEEVEC [Suspect]
     Indication: GASTROINTESTINAL STROMAL TUMOUR
     Dosage: 400 MG, BID, ORAL
     Route: 048

REACTIONS (3)
  - GASTROINTESTINAL STROMAL TUMOUR [None]
  - DRUG INEFFECTIVE [None]
  - NEOPLASM MALIGNANT [None]
